FAERS Safety Report 7087970-0 (Version None)
Quarter: 2010Q4

REPORT INFORMATION
  Report Type: 
  Country: None (occurrence: None)
  Receive Date: 20101108
  Receipt Date: 20101026
  Transmission Date: 20110411
  Serious: Yes (Hospitalization, Other)
  Sender: FDA-Public Use
  Company Number: CA-ELI_LILLY_AND_COMPANY-CA201009001481

PATIENT
  Age: 65 Year
  Sex: Female

DRUGS (1)
  1. FORTEO [Suspect]
     Indication: OSTEOPOROSIS
     Dosage: 20 UG, DAILY (1/D)
     Route: 058
     Dates: start: 20090424, end: 20100728

REACTIONS (5)
  - ASTHENIA [None]
  - CARDIAC FAILURE [None]
  - IMPAIRED HEALING [None]
  - MYOCARDIAL INFARCTION [None]
  - PRINZMETAL ANGINA [None]
